FAERS Safety Report 9174781 (Version 2)
Quarter: 2013Q3

REPORT INFORMATION
  Report Type: Spontaneous
  Country: FR (occurrence: FR)
  Receive Date: 20130320
  Receipt Date: 20130801
  Transmission Date: 20140515
  Serious: Yes (Hospitalization, Other)
  Sender: FDA-Public Use
  Company Number: FR-ASTRAZENECA-2013SE16863

PATIENT
  Age: 90 Year
  Sex: Female

DRUGS (14)
  1. INEXIUM [Suspect]
     Route: 048
     Dates: start: 20100820
  2. LASILIX [Suspect]
     Route: 048
     Dates: start: 20130115
  3. PREVISCAN [Suspect]
     Route: 048
     Dates: start: 20130208
  4. ZYLORIC [Suspect]
     Route: 048
     Dates: start: 20130123, end: 20130218
  5. BISOCE [Concomitant]
  6. DUPHALAC [Concomitant]
  7. LEXOMIL [Concomitant]
  8. RENAGEL [Concomitant]
  9. ACUPAN [Concomitant]
  10. VENTOLINE [Concomitant]
  11. PARACETAMOL [Concomitant]
  12. AERIUS [Concomitant]
  13. ATARAX [Concomitant]
  14. DIFFU K [Concomitant]

REACTIONS (10)
  - Renal failure acute [Recovered/Resolved]
  - Delirium [Recovered/Resolved]
  - Urinary tract infection bacterial [Recovered/Resolved]
  - Lymphopenia [Recovered/Resolved]
  - Drug reaction with eosinophilia and systemic symptoms [Recovered/Resolved]
  - Eosinophilia [Recovered/Resolved]
  - Rash maculo-papular [Recovered/Resolved]
  - Tongue oedema [Recovered/Resolved]
  - Face oedema [Recovered/Resolved]
  - International normalised ratio increased [Recovered/Resolved]
